FAERS Safety Report 5004878-2 (Version None)
Quarter: 2006Q1

REPORT INFORMATION
  Report Type: 
  Country: None (occurrence: None)
  Receive Date: 20060321
  Receipt Date: 20051227
  Transmission Date: 20060701
  Serious: No
  Sender: FDA-Public Use
  Company Number: YPA20060015

PATIENT
  Age: 65 Year
  Sex: Female

DRUGS (1)
  1. VESICARE [Suspect]
     Indication: HYPERTONIC BLADDER
     Dosage: 5 MG, UNK, ORAL
     Route: 048
     Dates: start: 20051201, end: 20051201

REACTIONS (3)
  - LACRIMAL DISORDER [None]
  - PRURITUS [None]
  - RASH MACULAR [None]
